FAERS Safety Report 25533565 (Version 1)
Quarter: 2025Q3

REPORT INFORMATION
  Report Type: Report from Study
  Country: CR (occurrence: CR)
  Receive Date: 20250709
  Receipt Date: 20250709
  Transmission Date: 20251020
  Serious: Yes (Other)
  Sender: BAYER HEALTHCARE PHARMACEUTICALS INC.
  Company Number: CR-BAYER-2025A089468

PATIENT
  Age: 21 Year
  Sex: Female

DRUGS (2)
  1. DIENOGEST\ESTRADIOL VALERATE [Suspect]
     Active Substance: DIENOGEST\ESTRADIOL VALERATE
     Indication: Ovarian cyst
     Route: 048
     Dates: start: 202311, end: 202504
  2. YAZ [Suspect]
     Active Substance: DROSPIRENONE\ETHINYL ESTRADIOL
     Indication: Ovarian cyst
     Route: 048
     Dates: start: 202504

REACTIONS (2)
  - Polycystic ovarian syndrome [Not Recovered/Not Resolved]
  - Product use in unapproved indication [None]

NARRATIVE: CASE EVENT DATE: 20250301
